FAERS Safety Report 14704275 (Version 1)
Quarter: 2018Q2

REPORT INFORMATION
  Report Type: Spontaneous
  Country: US (occurrence: US)
  Receive Date: 20180402
  Receipt Date: 20180402
  Transmission Date: 20180711
  Serious: No
  Sender: FDA-Public Use
  Company Number: US-ALLERGAN-1754261US

PATIENT
  Sex: Female

DRUGS (3)
  1. DELZICOL [Suspect]
     Active Substance: MESALAMINE
     Dosage: 6 DF, QD
  2. DELZICOL [Suspect]
     Active Substance: MESALAMINE
     Dosage: 3 DF, QD
  3. DELZICOL [Suspect]
     Active Substance: MESALAMINE
     Indication: COLITIS ULCERATIVE
     Dosage: 12 DF, QD

REACTIONS (3)
  - Drug dose omission [Unknown]
  - Incorrect dose administered [Unknown]
  - Drug effect incomplete [Unknown]

NARRATIVE: CASE EVENT DATE: 20170919
